FAERS Safety Report 24934270 (Version 1)
Quarter: 2025Q1

REPORT INFORMATION
  Report Type: Spontaneous
  Country: GB (occurrence: GB)
  Receive Date: 20250206
  Receipt Date: 20250206
  Transmission Date: 20250409
  Serious: No
  Sender: EXELIXIS
  Company Number: GB-IPSEN Group, Research and Development-2024-24230

PATIENT
  Age: 20 Year
  Sex: Male
  Weight: 99.4 kg

DRUGS (2)
  1. CABOMETYX [Suspect]
     Active Substance: CABOZANTINIB S-MALATE
     Indication: Ewing^s sarcoma
     Dosage: 60 MG, QD
     Route: 048
     Dates: start: 20240909, end: 202409
  2. CABOMETYX [Suspect]
     Active Substance: CABOZANTINIB S-MALATE
     Indication: Off label use
     Route: 065
     Dates: start: 20241018, end: 20241125

REACTIONS (4)
  - Toxicity to various agents [Unknown]
  - Mucosal inflammation [Not Recovered/Not Resolved]
  - Diarrhoea [Recovered/Resolved]
  - Off label use [Unknown]

NARRATIVE: CASE EVENT DATE: 20240909
